FAERS Safety Report 7629180-1 (Version None)
Quarter: 2011Q3

REPORT INFORMATION
  Report Type: 
  Country: None (occurrence: None)
  Receive Date: 20110722
  Receipt Date: 20110713
  Transmission Date: 20111222
  Serious: Yes (Other)
  Sender: FDA-Public Use
  Company Number: PHHY2011NL62975

PATIENT
  Sex: Female

DRUGS (2)
  1. ZOMETA [Suspect]
     Dosage: 4 MG/ 5 ML
     Route: 042
     Dates: start: 20110615
  2. ZOMETA [Suspect]
     Indication: METASTATIC RENAL CELL CARCINOMA
     Dosage: 4 MG/ 5 ML
     Route: 042
     Dates: start: 20101122

REACTIONS (1)
  - TERMINAL STATE [None]
